FAERS Safety Report 14846815 (Version 1)
Quarter: 2018Q2

REPORT INFORMATION
  Report Type: Spontaneous
  Country: US (occurrence: US)
  Receive Date: 20180504
  Receipt Date: 20180504
  Transmission Date: 20180711
  Serious: No
  Sender: FDA-Public Use
  Company Number: US-PFIZER INC-2018178600

PATIENT
  Sex: Female

DRUGS (1)
  1. XANAX [Suspect]
     Active Substance: ALPRAZOLAM
     Indication: SLEEP DISORDER
     Dosage: 2 MG, UNK

REACTIONS (5)
  - Drug ineffective for unapproved indication [Unknown]
  - Malaise [Unknown]
  - Withdrawal syndrome [Unknown]
  - Suspected counterfeit product [Unknown]
  - Bone pain [Unknown]
